FAERS Safety Report 13637119 (Version 1)
Quarter: 2017Q2

REPORT INFORMATION
  Report Type: Spontaneous
  Country: IT (occurrence: IT)
  Receive Date: 20170609
  Receipt Date: 20170609
  Transmission Date: 20170830
  Serious: Yes (Other)
  Sender: FDA-Public Use
  Company Number: IT-TEVA-775430ROM

PATIENT
  Age: 45 Year
  Sex: Male

DRUGS (4)
  1. FLUOROURACIL. [Suspect]
     Active Substance: FLUOROURACIL
     Indication: NASOPHARYNGEAL CANCER
     Dosage: DOSE GIVEN 750MG/MM FOR 5 DAYS EVERY 4 WEEKS
     Route: 065
  2. CISPLATIN. [Suspect]
     Active Substance: CISPLATIN
     Indication: NASOPHARYNGEAL CANCER
     Dosage: DOSE REDUCED TO 40 MG/M2, WEEKLY
  3. CISPLATIN. [Suspect]
     Active Substance: CISPLATIN
     Indication: NASOPHARYNGEAL CANCER
     Dosage: 75 MG/M2 EVERY 4 WEEKS;
  4. DOCETAXEL. [Suspect]
     Active Substance: DOCETAXEL
     Indication: NASOPHARYNGEAL CANCER
     Dosage: DOSE GIVEN 75 MG/MM EVERY 4 WEEKS
     Route: 065

REACTIONS (12)
  - Transaminases increased [Unknown]
  - Hiccups [Recovered/Resolved]
  - Thrombocytopenia [Unknown]
  - Stomatitis [Unknown]
  - Nausea [Unknown]
  - Alopecia [Unknown]
  - Ear infection [Unknown]
  - Vomiting [Unknown]
  - Asthenia [Unknown]
  - Leukopenia [Unknown]
  - Tongue oedema [Unknown]
  - Diarrhoea [Unknown]
